FAERS Safety Report 8506004-1 (Version None)
Quarter: 2012Q3

REPORT INFORMATION
  Report Type: 
  Country: None (occurrence: None)
  Receive Date: 20120712
  Receipt Date: 20120705
  Transmission Date: 20120928
  Serious: Yes (Other)
  Sender: FDA-Public Use
  Company Number: DE-GLAXOSMITHKLINE-D0075245A

PATIENT
  Sex: Female
  Weight: 56 kg

DRUGS (2)
  1. FLUTICASONE PROPIONATE/SALMETEROL [Suspect]
     Indication: BRONCHITIS
     Route: 055
  2. MULTIPLE MEDICATION [Concomitant]
     Route: 065

REACTIONS (5)
  - CHOKING [None]
  - COUGH [None]
  - DYSPHONIA [None]
  - GENERAL PHYSICAL HEALTH DETERIORATION [None]
  - BRONCHITIS [None]
